FAERS Safety Report 25670059 (Version 8)
Quarter: 2025Q4

REPORT INFORMATION
  Report Type: Spontaneous
  Country: CA (occurrence: CA)
  Receive Date: 20250812
  Receipt Date: 20251006
  Transmission Date: 20260118
  Serious: Yes (Hospitalization)
  Sender: ASTELLAS
  Company Number: CA-PFIZER INC-PV202500076344

PATIENT
  Age: 83 Year
  Sex: Male
  Weight: 70 kg

DRUGS (13)
  1. PADCEV [Suspect]
     Active Substance: ENFORTUMAB VEDOTIN-EJFV
     Indication: Transitional cell carcinoma metastatic
     Dosage: 88 MG, CYCLIC (DAY1 AND DAY 8 OF 21-DAY CYCLE)?POWDER FOR SOLUTION FOR INFUSION
     Route: 042
     Dates: start: 20250623, end: 20250623
  2. PADCEV [Suspect]
     Active Substance: ENFORTUMAB VEDOTIN-EJFV
     Dosage: 88 MG, CYCLIC (DAY1 AND DAY 8 OF 21-DAY CYCLE)?POWDER FOR SOLUTION FOR INFUSION
     Route: 042
     Dates: start: 20250630
  3. PADCEV [Suspect]
     Active Substance: ENFORTUMAB VEDOTIN-EJFV
     Dosage: 85.6 MG, CYCLIC (DAY 1 AND DAY 8 OF 21-DAY CYCLE)?POWDER FOR SOLUTION FOR INFUSION
     Route: 042
     Dates: start: 20250715, end: 20250715
  4. PADCEV [Suspect]
     Active Substance: ENFORTUMAB VEDOTIN-EJFV
     Dosage: 85.6 MG, CYCLIC (DAY 1 AND DAY 8 OF 21-DAY CYCLE)?POWDER FOR SOLUTION FOR INFUSION
     Route: 042
     Dates: start: 20250722, end: 20250722
  5. PADCEV [Suspect]
     Active Substance: ENFORTUMAB VEDOTIN-EJFV
     Dosage: 81.25 MG, CYCLIC (DAY 1 AND DAY 8 OF 21-DAY CYCLE)?POWDER FOR SOLUTION FOR INFUSION
     Route: 042
     Dates: start: 20250826
  6. PADCEV [Suspect]
     Active Substance: ENFORTUMAB VEDOTIN-EJFV
     Dosage: 81.3 MG, CYCLIC (DAY 1 AND DAY 8 OF 21-DAY CYCLE)?POWDER FOR SOLUTION FOR INFUSION
     Route: 042
     Dates: start: 20250902
  7. PADCEV [Suspect]
     Active Substance: ENFORTUMAB VEDOTIN-EJFV
     Dosage: 82.5 MG, CYCLIC (DAY 1 AND DAY 8 OF 21-DAY CYCLE)INFUSION #7?POWDER FOR SOLUTION FOR INFUSION
     Route: 042
     Dates: start: 20250916
  8. PADCEV [Suspect]
     Active Substance: ENFORTUMAB VEDOTIN-EJFV
     Dosage: 82.5 MG, CYCLIC (DAY 1 AND DAY 8 OF 21-DAY CYCLE)?POWDER FOR SOLUTION FOR INFUSION
     Route: 042
     Dates: start: 20250923
  9. KEYTRUDA [Concomitant]
     Active Substance: PEMBROLIZUMAB
     Indication: Transitional cell carcinoma metastatic
     Dosage: UNK
     Route: 065
  10. ATORVASTATIN [Concomitant]
     Active Substance: ATORVASTATIN
     Indication: Product used for unknown indication
     Route: 065
  11. METOPROLOL [Concomitant]
     Active Substance: METOPROLOL
     Indication: Product used for unknown indication
     Route: 065
  12. PERINDOPRIL [Concomitant]
     Active Substance: PERINDOPRIL
     Indication: Product used for unknown indication
     Route: 065
  13. EZETIMIBE [Concomitant]
     Active Substance: EZETIMIBE
     Indication: Product used for unknown indication
     Route: 065

REACTIONS (9)
  - Carditis [Unknown]
  - Swelling face [Recovering/Resolving]
  - Diarrhoea [Recovered/Resolved]
  - Blood pressure diastolic decreased [Unknown]
  - Administration site extravasation [Unknown]
  - Heart rate decreased [Recovered/Resolved]
  - Blood pressure fluctuation [Recovering/Resolving]
  - Weight decreased [Unknown]
  - Body temperature decreased [Unknown]

NARRATIVE: CASE EVENT DATE: 20250101
